FAERS Safety Report 7550971-X (Version None)
Quarter: 2011Q2

REPORT INFORMATION
  Report Type: 
  Country: None (occurrence: None)
  Receive Date: 20110616
  Receipt Date: 20110608
  Transmission Date: 20111010
  Serious: Yes (Hospitalization, Other)
  Sender: FDA-Public Use
  Company Number: JP-ASTELLAS-2011JP001693

PATIENT
  Sex: Female
  Weight: 47 kg

DRUGS (22)
  1. BENET [Concomitant]
     Indication: OSTEOPOROSIS PROPHYLAXIS
     Dosage: 17.5 MG, WEEKLY
     Route: 048
     Dates: start: 20090901
  2. LEBENIN [Concomitant]
     Indication: DISBACTERIOSIS
     Dosage: 1 G, TID
     Route: 048
     Dates: start: 20090901
  3. CLARITHROMYCIN [Concomitant]
     Indication: BRONCHITIS CHRONIC
     Dosage: 400 MG, UID/QD
     Route: 048
     Dates: start: 20110209
  4. METHOTREXATE [Suspect]
     Dosage: 2.5 MG, UID/QD
     Route: 048
     Dates: start: 20090901, end: 20110208
  5. MICARDIS [Suspect]
     Dosage: 40 MG, QOD
     Route: 048
     Dates: start: 20101214, end: 20110208
  6. SAFILDINE EN [Concomitant]
     Indication: RHEUMATOID ARTHRITIS
     Dosage: 1000 MG, UID/QD
     Route: 048
     Dates: start: 20090901
  7. TELMISARTAN [Suspect]
     Indication: HYPERTENSION
     Dosage: 1 DF, UID/QD
     Route: 048
     Dates: start: 20101105, end: 20101129
  8. MEDROL [Suspect]
     Indication: RHEUMATOID ARTHRITIS
     Dosage: 8 MG, UID/QD
     Route: 048
     Dates: start: 20090901
  9. MICARDIS [Suspect]
     Dosage: 80 MG, UID/QD
     Route: 048
     Dates: start: 20110209
  10. PROGRAF [Suspect]
     Dosage: 2 MG, UID/QD
     Route: 048
     Dates: start: 20080902, end: 20081202
  11. ISONIAZID [Concomitant]
     Indication: ANTIBIOTIC PROPHYLAXIS
     Dosage: 200 MG, UID/QD
     Route: 048
     Dates: start: 20090901
  12. MAGMITT [Concomitant]
     Indication: GASTRITIS PROPHYLAXIS
     Dosage: 500 MG, UID/QD
     Route: 048
     Dates: start: 20090901
  13. ETICALM [Concomitant]
     Indication: DEPRESSION
     Dosage: 1 MG, UID/QD
     Route: 048
     Dates: start: 20090901
  14. METHOTREXATE [Suspect]
     Dosage: 5 MG, UID/QD
     Route: 048
     Dates: start: 20110209, end: 20110302
  15. TELMISARTAN [Suspect]
     Dosage: 1 DF, QOD
     Route: 048
     Dates: start: 20101130, end: 20110126
  16. CALFINA [Concomitant]
     Indication: OSTEOPOROSIS PROPHYLAXIS
     Dosage: 0.5 UG, UID/QD
     Route: 048
     Dates: start: 20090901
  17. LIPOZART [Concomitant]
     Indication: HYPERLIPIDAEMIA
     Dosage: 10 MG, UID/QD
     Route: 048
     Dates: start: 20090901
  18. LEUCOVORIN CALCIUM [Concomitant]
     Dosage: 15 MG, UNKNOWN/D
     Route: 065
     Dates: start: 20081203
  19. PROGRAF [Suspect]
     Indication: RHEUMATOID ARTHRITIS
     Dosage: 1 MG, UID/QD
     Route: 048
     Dates: start: 20090901, end: 20110301
  20. METHOTREXATE [Suspect]
     Indication: RHEUMATOID ARTHRITIS
     Dosage: 15 MG, UNKNOWN/D
     Route: 048
     Dates: end: 20081202
  21. MICARDIS [Suspect]
     Indication: HYPERTENSION
     Dosage: 40 MG, UID/QD
     Route: 048
     Dates: start: 20101212, end: 20101213
  22. PAXIL [Concomitant]
     Indication: DEPRESSION
     Dosage: 20 MG, UID/QD
     Route: 048
     Dates: start: 20090901

REACTIONS (8)
  - POLYURIA [None]
  - FALL [None]
  - DIABETES MELLITUS [None]
  - WEIGHT DECREASED [None]
  - PLATELET COUNT DECREASED [None]
  - INTERSTITIAL LUNG DISEASE [None]
  - SUBDURAL HAEMATOMA [None]
  - PNEUMONIA ASPIRATION [None]
